FAERS Safety Report 9870192 (Version 1)
Quarter: 2014Q1

REPORT INFORMATION
  Report Type: Spontaneous
  Country: US (occurrence: None)
  Receive Date: 20140131
  Receipt Date: 20140131
  Transmission Date: 20141002
  Serious: Yes (Hospitalization)
  Sender: FDA-Public Use
  Company Number: CIO4005681

PATIENT
  Age: 29 Year
  Sex: Female

DRUGS (4)
  1. NYQUIL COLD + FLU [Suspect]
     Dosage: DOSAGE PER LABEL ONCE ONLY, ORAL
     Route: 048
     Dates: start: 20110101
  2. CARDIOVASCULAR SYSTEM DRUGS [Concomitant]
  3. SPIROLACTON (SPIRONOLACTONE) [Concomitant]
  4. DIGOXIN (DIGOXIN) [Concomitant]

REACTIONS (2)
  - Blood pressure decreased [None]
  - Psychomotor hyperactivity [None]
